FAERS Safety Report 7345772-1 (Version None)
Quarter: 2011Q1

REPORT INFORMATION
  Report Type: 
  Country: None (occurrence: None)
  Receive Date: 20110311
  Receipt Date: 20110303
  Transmission Date: 20110831
  Serious: No
  Sender: FDA-Public Use
  Company Number: GB-BIOGENIDEC-2011BI003946

PATIENT
  Sex: Female

DRUGS (3)
  1. TYSABRI [Suspect]
     Indication: MULTIPLE SCLEROSIS
     Route: 042
  2. VENTOLIN [Concomitant]
  3. BECOTIDE [Concomitant]

REACTIONS (1)
  - NO ADVERSE EVENT [None]
